FAERS Safety Report 14596417 (Version 2)
Quarter: 2018Q2

REPORT INFORMATION
  Report Type: Spontaneous
  Country: GB (occurrence: GB)
  Receive Date: 20180303
  Receipt Date: 20180507
  Transmission Date: 20180711
  Serious: Yes (Hospitalization)
  Sender: FDA-Public Use
  Company Number: PHHY2017GB201437

PATIENT
  Age: 53 Year
  Sex: Female
  Weight: 74.7 kg

DRUGS (10)
  1. PARACETAMOL [Concomitant]
     Active Substance: ACETAMINOPHEN
     Indication: ABDOMINAL PAIN
     Dosage: 1000 MG, QID
     Route: 048
     Dates: start: 20171017
  2. PACLITAXEL. [Suspect]
     Active Substance: PACLITAXEL
     Indication: OVARIAN CANCER
     Dosage: UNK UNK, Q3W (EVERY 3 WEEKS)
     Route: 042
     Dates: start: 20171117
  3. BETNOVAT [Concomitant]
     Active Substance: BETAMETHASONE
     Indication: RASH
     Dosage: UNK, TID (UNK %, CREAM 3X/DAY)
     Route: 061
     Dates: start: 20171127, end: 20171205
  4. AVELUMAB [Suspect]
     Active Substance: AVELUMAB
     Indication: OVARIAN CANCER
     Dosage: 1 UNK, Q3W (EVERY 3 WEEKS)
     Route: 042
     Dates: start: 20171117
  5. DIPROBASE [Concomitant]
     Active Substance: CHLOROCRESOL
     Indication: RASH
     Dosage: UNK UNK, TID
     Route: 061
     Dates: start: 20171127, end: 20171205
  6. DOMPERIDONE [Concomitant]
     Active Substance: DOMPERIDONE
     Indication: PROPHYLAXIS OF NAUSEA AND VOMITING
     Dosage: 10 MG, TID
     Route: 048
     Dates: start: 20171117
  7. SANDO K [Concomitant]
     Indication: ELECTROLYTE SUBSTITUTION THERAPY
     Dosage: 600 MG, QD
     Route: 048
     Dates: start: 20171107, end: 20171230
  8. CARBOPLATIN. [Suspect]
     Active Substance: CARBOPLATIN
     Indication: OVARIAN CANCER
     Dosage: UNK UNK, Q3W
     Route: 042
     Dates: start: 20171117
  9. DEXAMETHASONE. [Concomitant]
     Active Substance: DEXAMETHASONE
     Indication: PROPHYLAXIS OF NAUSEA AND VOMITING
     Dosage: 4 MG, UNK (2 MG, 2X/DAY)
     Route: 048
     Dates: start: 20171119, end: 20171121
  10. CHLORPHENAMINE [Concomitant]
     Active Substance: CHLORPHENIRAMINE MALEATE
     Indication: RASH
     Dosage: 4 MG, TID
     Route: 048
     Dates: start: 20171127, end: 20171205

REACTIONS (2)
  - Pyrexia [Recovered/Resolved]
  - Pulmonary embolism [Recovered/Resolved]

NARRATIVE: CASE EVENT DATE: 20171127
